FAERS Safety Report 20729604 (Version 1)
Quarter: 2022Q2

REPORT INFORMATION
  Report Type: Report from Study
  Country: IT (occurrence: IT)
  Receive Date: 20220420
  Receipt Date: 20220420
  Transmission Date: 20220721
  Serious: Yes (Other)
  Sender: FDA-Public Use
  Company Number: IT-MYLANLABS-2022M1027839

PATIENT
  Age: 66 Year
  Sex: Female

DRUGS (2)
  1. PREDNISONE [Suspect]
     Active Substance: PREDNISONE
     Indication: Polyneuropathy
     Dosage: UNK
     Route: 048
  2. NIVOLUMAB [Concomitant]
     Active Substance: NIVOLUMAB
     Indication: Small cell lung cancer
     Dosage: UNK UNK, CYCLE; 4 CYCLES
     Route: 065

REACTIONS (1)
  - Drug ineffective [Unknown]
